FAERS Safety Report 13611524 (Version 2)
Quarter: 2017Q2

REPORT INFORMATION
  Report Type: Spontaneous
  Country: DE (occurrence: ER)
  Receive Date: 20170605
  Receipt Date: 20170609
  Transmission Date: 20170830
  Serious: Yes (Other)
  Sender: FDA-Public Use
  Company Number: DE-009507513-1705DEU015590

PATIENT
  Sex: Female

DRUGS (1)
  1. IMPLANON [Suspect]
     Active Substance: ETONOGESTREL
     Indication: CONTRACEPTION
     Dosage: 2 RODS, UNK
     Route: 059

REACTIONS (3)
  - Haemoglobin decreased [Recovered/Resolved]
  - Vaginal haemorrhage [Recovered/Resolved]
  - Overdose [Unknown]
